FAERS Safety Report 4904398-7 (Version None)
Quarter: 2006Q1

REPORT INFORMATION
  Report Type: 
  Country: None (occurrence: None)
  Receive Date: 20060208
  Receipt Date: 20050831
  Transmission Date: 20060701
  Serious: No
  Sender: FDA-Public Use
  Company Number: US-GLAXOSMITHKLINE-A0572559A

PATIENT
  Age: 26 Year
  Sex: Female

DRUGS (2)
  1. PAXIL [Suspect]
     Indication: DEPRESSION
     Dosage: 10MG PER DAY
     Route: 048
     Dates: start: 20030101, end: 20030101
  2. ORTHO TRI-CYCLEN [Concomitant]

REACTIONS (3)
  - DIZZINESS [None]
  - DRUG WITHDRAWAL SYNDROME [None]
  - PARAESTHESIA [None]
